FAERS Safety Report 5767125-X (Version None)
Quarter: 2008Q2

REPORT INFORMATION
  Report Type: 
  Country: None (occurrence: None)
  Receive Date: 20080609
  Receipt Date: 20080409
  Transmission Date: 20081010
  Serious: No
  Sender: FDA-Public Use
  Company Number: 002#1#2008-00227

PATIENT
  Age: 69 Year
  Sex: Male
  Weight: 68.0396 kg

DRUGS (6)
  1. NEUPRO [Suspect]
     Indication: PARKINSON'S DISEASE
     Dosage: 4MG/24H,1 IN 1 D,TRANSDERMAL
     Route: 062
     Dates: start: 20080317, end: 20080327
  2. CARBIDOPA AND LEVODOPA [Concomitant]
  3. AMANTADINE HCL [Concomitant]
  4. SERTRALINE [Concomitant]
  5. NAMENDA [Concomitant]
  6. CLONAZEPAM [Concomitant]

REACTIONS (1)
  - HALLUCINATION [None]
